FAERS Safety Report 14318706 (Version 1)
Quarter: 2017Q4

REPORT INFORMATION
  Report Type: Report from Study
  Country: IT (occurrence: IT)
  Receive Date: 20171222
  Receipt Date: 20171222
  Transmission Date: 20180321
  Serious: Yes (Death, Other)
  Sender: FDA-Public Use
  Company Number: IT-MYLANLABS-2017M1078894

PATIENT
  Age: 42 Year
  Sex: Female

DRUGS (16)
  1. TOPIRAMATE. [Concomitant]
     Active Substance: TOPIRAMATE
     Indication: SEIZURE
     Dosage: UNK
     Route: 065
  2. VALERIAN                           /01561601/ [Concomitant]
     Active Substance: VALERIAN
     Indication: SEDATIVE THERAPY
     Dosage: UNK
     Route: 065
  3. CROCUS ORSINII [Concomitant]
     Indication: DECREASED APPETITE
     Dosage: UNK
     Route: 065
  4. PHENYLPROPANOLAMINE [Suspect]
     Active Substance: PHENYLPROPANOLAMINE
     Indication: DECREASED APPETITE
     Dosage: DOSE RANGING FROM 30-90 MG/DAY, SCHEDULED FOR 9 CYCLES
     Route: 065
  5. ALOE                               /01332701/ [Concomitant]
     Indication: PRODUCT USED FOR UNKNOWN INDICATION
     Dosage: UNK
     Route: 065
  6. GLUCOMANNAN [Concomitant]
     Active Substance: KONJAC MANNAN
     Indication: DECREASED APPETITE
     Dosage: UNK
     Route: 065
  7. GRIFFONIA [Concomitant]
     Indication: DECREASED APPETITE
     Dosage: UNK
     Route: 065
  8. GUARANA                            /01333101/ [Concomitant]
     Active Substance: HERBALS\PAULLINIA CUPANA SEED
     Indication: PRODUCT USED FOR UNKNOWN INDICATION
     Dosage: UNK
     Route: 065
  9. BUPROPION. [Suspect]
     Active Substance: BUPROPION
     Indication: DECREASED APPETITE
     Dosage: DOSE RANGING FROM 100-150 MG/DAY, SCHEDULED FOR 9 CYCLES
     Route: 065
  10. PHENDIMETRAZINE. [Suspect]
     Active Substance: PHENDIMETRAZINE TARTRATE
     Indication: DECREASED APPETITE
     Dosage: DOSE RANGING FROM 100-225 MG/DAY, SCHEDULED FOR 9 CYCLES.
     Route: 065
  11. FLUOXETINE [Concomitant]
     Active Substance: FLUOXETINE HYDROCHLORIDE
     Indication: DEPRESSION
     Dosage: UNK
     Route: 065
  12. RHUBARB. [Concomitant]
     Active Substance: RHUBARB
     Indication: LAXATIVE SUPPORTIVE CARE
     Dosage: UNK
     Route: 065
  13. GINSENG                            /01199605/ [Concomitant]
     Active Substance: ASIAN GINSENG
     Indication: PRODUCT USED FOR UNKNOWN INDICATION
     Dosage: UNK
     Route: 065
  14. DIPOTASSIUM CLORAZEPATE [Concomitant]
     Active Substance: CLORAZEPATE DIPOTASSIUM
     Indication: PRODUCT USED FOR UNKNOWN INDICATION
     Dosage: UNK
     Route: 065
  15. HYPERICUM                          /01166801/ [Concomitant]
     Active Substance: HYPERICUM PERFORATUM
     Indication: PRODUCT USED FOR UNKNOWN INDICATION
     Dosage: UNK
     Route: 065
  16. CASCARA [Concomitant]
     Active Substance: RHAMNUS PURSHIANA BARK EXTRACT
     Indication: LAXATIVE SUPPORTIVE CARE
     Dosage: UNK
     Route: 065

REACTIONS (6)
  - Left ventricular hypertrophy [Fatal]
  - Cardiac septal hypertrophy [Fatal]
  - Sudden cardiac death [Fatal]
  - Myocardial fibrosis [Fatal]
  - Angiopathy [Fatal]
  - Myocarditis [Fatal]
